FAERS Safety Report 5863315-6 (Version None)
Quarter: 2008Q3

REPORT INFORMATION
  Report Type: 
  Country: None (occurrence: None)
  Receive Date: 20080828
  Receipt Date: 20080819
  Transmission Date: 20090109
  Serious: Yes (Hospitalization)
  Sender: FDA-Public Use
  Company Number: PHEH2008US07267

PATIENT
  Age: 23 Year
  Sex: Female

DRUGS (5)
  1. RECLAST [Suspect]
     Indication: OSTEOPOROSIS
     Dosage: 5 MG, UNK
     Dates: start: 20080716
  2. CARBAMAZEPINE [Concomitant]
     Indication: CONVULSION
  3. LEVOXYL [Concomitant]
     Indication: HYPOTHYROIDISM
  4. MACROGOL [Concomitant]
  5. CLONIDINE [Concomitant]
     Indication: RETT'S DISORDER

REACTIONS (9)
  - CHEST PAIN [None]
  - FUNGAL INFECTION [None]
  - NAUSEA [None]
  - PNEUMONIA BACTERIAL [None]
  - PYREXIA [None]
  - REFLUX GASTRITIS [None]
  - URINARY TRACT INFECTION [None]
  - VOMITING [None]
  - WHITE BLOOD CELL COUNT DECREASED [None]
